FAERS Safety Report 4919678-9 (Version None)
Quarter: 2006Q1

REPORT INFORMATION
  Report Type: 
  Country: None (occurrence: None)
  Receive Date: 20060221
  Receipt Date: 20060208
  Transmission Date: 20060701
  Serious: Yes (Hospitalization, Other)
  Sender: FDA-Public Use
  Company Number: 2006020029

PATIENT
  Age: 57 Year
  Sex: Female

DRUGS (15)
  1. CELEBREX [Suspect]
     Indication: OSTEOARTHRITIS
     Dosage: 400 MG (200 MG, 2 IN 1 D), ORAL
     Route: 048
     Dates: start: 20030408, end: 20040101
  2. SEROXAT ^NOVO NORDISK^ (PAROXETINE HYDROCHLORIDE) [Concomitant]
  3. THYROXIN-NATRIUM (LEVOTHYROXINE SODIUM) [Concomitant]
  4. LAMICTAL [Concomitant]
  5. BETOLVEX (CYANOCOBALAMIN-TANNIN COMPLEX) [Concomitant]
  6. PARALGIN FORTE (CODEINE PHOSPHATE, PARACETAMOL) [Concomitant]
  7. FUROSEMIDE [Concomitant]
  8. MAREVAN ^NYCOMED^ (WARFARIN SODIUM) [Concomitant]
  9. CALCIUM WITH VITAMIN D (CALCIUM PHOSPHATE, CALCIUM SODIUM LACATE, ERGO [Concomitant]
  10. DALACIN [Concomitant]
  11. LIVOSTIN [Concomitant]
  12. BRICANYL TURBUHALER (TERBUTALINE SULFATE) [Concomitant]
  13. FUROSEMIDE [Concomitant]
  14. ISOPTIN [Concomitant]
  15. METOPROLOL SUCCINATE [Concomitant]

REACTIONS (22)
  - ALVEOLITIS [None]
  - ATRIAL FIBRILLATION [None]
  - CARPAL TUNNEL SYNDROME [None]
  - CHEST PAIN [None]
  - DIZZINESS [None]
  - EXTRASYSTOLES [None]
  - HEART RATE IRREGULAR [None]
  - LISTLESS [None]
  - MALAISE [None]
  - MITRAL VALVE INCOMPETENCE [None]
  - NAUSEA [None]
  - OSTEOARTHRITIS [None]
  - OSTEOCHONDROSIS [None]
  - PALPITATIONS [None]
  - PULMONARY CONGESTION [None]
  - PULMONARY FIBROSIS [None]
  - SPINAL COLUMN STENOSIS [None]
  - SPINAL OSTEOARTHRITIS [None]
  - TONSILLITIS STREPTOCOCCAL [None]
  - TOOTH INFECTION [None]
  - TRICUSPID VALVE INCOMPETENCE [None]
  - VIRAL INFECTION [None]
